FAERS Safety Report 12898727 (Version 1)
Quarter: 2016Q4

REPORT INFORMATION
  Report Type: Spontaneous
  Country: RU (occurrence: RU)
  Receive Date: 20161101
  Receipt Date: 20161101
  Transmission Date: 20170207
  Serious: Yes (Hospitalization)
  Sender: FDA-Public Use
  Company Number: RU-ASTRAZENECA-2016SF12136

PATIENT
  Age: 52 Year
  Sex: Female
  Weight: 80 kg

DRUGS (11)
  1. THROMBO ASS [Concomitant]
     Active Substance: ASPIRIN
  2. CORAXAN [Concomitant]
     Active Substance: IVABRADINE HYDROCHLORIDE
  3. VAMLOSET [Concomitant]
  4. ASCORBIC ACID. [Concomitant]
     Active Substance: ASCORBIC ACID
  5. MAGNESIUM HYDROXIDE. [Concomitant]
     Active Substance: MAGNESIUM HYDROXIDE
  6. BETALOC ZOK [Concomitant]
     Active Substance: METOPROLOL SUCCINATE
     Route: 048
  7. SORBIFER [Concomitant]
     Active Substance: FERROUS SULFATE
  8. BRILINTA [Suspect]
     Active Substance: TICAGRELOR
     Indication: ACUTE CORONARY SYNDROME
     Route: 048
     Dates: start: 201606
  9. PECTROL [Concomitant]
  10. DIUVER [Concomitant]
     Active Substance: TORSEMIDE
  11. VEROSPIRON [Concomitant]
     Active Substance: SPIRONOLACTONE

REACTIONS (1)
  - Blood pressure increased [Recovered/Resolved]

NARRATIVE: CASE EVENT DATE: 201608
